FAERS Safety Report 4871491-7 (Version None)
Quarter: 2005Q4

REPORT INFORMATION
  Report Type: 
  Country: None (occurrence: None)
  Receive Date: 20051229
  Receipt Date: 20051209
  Transmission Date: 20060501
  Serious: Yes (Other)
  Sender: FDA-Public Use
  Company Number: US_0503114070

PATIENT
  Age: 67 Year
  Sex: Male
  Weight: 77.1 kg

DRUGS (4)
  1. CIALIS [Suspect]
     Indication: ERECTILE DYSFUNCTION
     Dosage: 20 MG, OTHER
     Dates: start: 20040701, end: 20040707
  2. ATORVASTATIN CALCIUM [Concomitant]
  3. ASPIRIN [Concomitant]
  4. FOLATE SODIUM (FOLATE SODIUM) [Concomitant]

REACTIONS (7)
  - BLINDNESS [None]
  - DRUG INEFFECTIVE [None]
  - OPTIC ISCHAEMIC NEUROPATHY [None]
  - PUPILLARY REFLEX IMPAIRED [None]
  - VISION BLURRED [None]
  - VISUAL ACUITY REDUCED [None]
  - VISUAL FIELD DEFECT [None]
